FAERS Safety Report 7044315-X (Version None)
Quarter: 2010Q4

REPORT INFORMATION
  Report Type: 
  Country: None (occurrence: None)
  Receive Date: 20101014
  Receipt Date: 20101007
  Transmission Date: 20110411
  Serious: No
  Sender: FDA-Public Use
  Company Number: US-BIOGENIDEC-2010BI035156

PATIENT
  Age: 34 Year
  Sex: Male

DRUGS (2)
  1. TYSABRI [Suspect]
     Indication: MULTIPLE SCLEROSIS
     Route: 042
     Dates: start: 20081114, end: 20091009
  2. TYSABRI [Suspect]
     Route: 042
     Dates: start: 20100715

REACTIONS (4)
  - DIZZINESS [None]
  - EYE MOVEMENT DISORDER [None]
  - HEADACHE [None]
  - MULTIPLE SCLEROSIS [None]
